FAERS Safety Report 24629900 (Version 1)
Quarter: 2024Q4

REPORT INFORMATION
  Report Type: Spontaneous
  Country: PL (occurrence: PL)
  Receive Date: 20241118
  Receipt Date: 20241118
  Transmission Date: 20250115
  Serious: Yes (Death)
  Sender: DECIPHERA PHARMACEUTICALS
  Company Number: PL-DECIPHERA PHARMACEUTICALS LLC-2024PL000943

PATIENT
  Sex: Male

DRUGS (1)
  1. QINLOCK [Suspect]
     Active Substance: RIPRETINIB
     Indication: Gastrointestinal stromal tumour
     Dosage: 150 MILLIGRAM, QD
     Dates: start: 202410, end: 2024

REACTIONS (1)
  - Disease progression [Fatal]
